FAERS Safety Report 7960209-7 (Version None)
Quarter: 2011Q4

REPORT INFORMATION
  Report Type: 
  Country: None (occurrence: None)
  Receive Date: 20111206
  Receipt Date: 20111201
  Transmission Date: 20120403
  Serious: Yes (Death)
  Sender: FDA-Public Use
  Company Number: PHHY2011MX105433

PATIENT
  Age: 92 Year
  Sex: Female

DRUGS (6)
  1. LEVOTHYROXINE SODIUM [Concomitant]
     Indication: THYROID DISORDER
     Dosage: 1 DF, DAILY
     Dates: start: 20111001
  2. STALEVO 100 [Suspect]
     Dosage: 1 DF, DAILY (200/100/12.5 MG)
     Dates: start: 20080901, end: 20111001
  3. MEMANTINE HYDROCHLORIDE [Concomitant]
     Indication: DEMENTIA ALZHEIMER'S TYPE
     Dosage: 1 DF, DAILY
     Dates: start: 20111001
  4. CYMBALTA [Concomitant]
     Indication: DEPRESSION
     Dosage: 1 DF, UNK
     Dates: start: 20111001
  5. CLONAZEPAM [Concomitant]
     Indication: SLEEP DISORDER
     Dosage: .25 DF, UNK
     Dates: start: 20111001
  6. PIRACETAM [Concomitant]
     Indication: MOTOR NEURONE DISEASE
     Dosage: 1 DF, DAILY
     Dates: start: 20111001

REACTIONS (2)
  - DEATH [None]
  - CARDIAC DISORDER [None]
